FAERS Safety Report 24850176 (Version 1)
Quarter: 2025Q1

REPORT INFORMATION
  Report Type: Spontaneous
  Country: IT (occurrence: IT)
  Receive Date: 20250116
  Receipt Date: 20250116
  Transmission Date: 20250409
  Serious: Yes (Hospitalization, Other)
  Sender: PERRIGO
  Company Number: IT-FINDERM-20240325

PATIENT
  Age: 20 Year
  Sex: Female

DRUGS (1)
  1. ULIPRISTAL ACETATE [Suspect]
     Active Substance: ULIPRISTAL ACETATE
     Indication: Oral contraception
     Route: 048

REACTIONS (3)
  - Drug-induced liver injury [Recovered/Resolved]
  - Hepatic failure [Recovered/Resolved]
  - Toxicity to various agents [Recovered/Resolved]
